FAERS Safety Report 8855184 (Version 1)
Quarter: 2012Q4

REPORT INFORMATION
  Report Type: 
  Country: US (occurrence: US)
  Receive Date: 20121023
  Receipt Date: 20121023
  Transmission Date: 20130627
  Serious: No
  Sender: FDA-Public Use
  Company Number: US-AMGEN-USASP2012060056

PATIENT
  Sex: Female

DRUGS (5)
  1. ENBREL [Suspect]
     Indication: PRODUCT USED FOR UNKNOWN INDICATION
     Dosage: 50 mg, qwk
     Route: 058
  2. SULFASALAZIN [Concomitant]
     Dosage: 500 mg, UNK
  3. METHOTREXATE [Concomitant]
     Dosage: 20 mg, UNK
  4. PREDNISONE [Concomitant]
     Dosage: 5 mg, UNK
  5. ZYRTEC ALLERGY [Concomitant]
     Dosage: 10 mg, UNK

REACTIONS (2)
  - Burning sensation [Unknown]
  - Erythema [Unknown]
